FAERS Safety Report 22663022 (Version 3)
Quarter: 2023Q4

REPORT INFORMATION
  Report Type: Spontaneous
  Country: US (occurrence: US)
  Receive Date: 20230703
  Receipt Date: 20231112
  Transmission Date: 20240110
  Serious: Yes (Hospitalization, Other)
  Sender: FDA-Public Use
  Company Number: US-BRISTOL-MYERS SQUIBB COMPANY-2023-092576

PATIENT
  Age: 70 Year
  Sex: Female

DRUGS (3)
  1. REVLIMID [Suspect]
     Active Substance: LENALIDOMIDE
     Indication: Plasma cell myeloma
     Dosage: FOR 3 CYCLES
     Route: 048
     Dates: start: 20221206
  2. REVLIMID [Suspect]
     Active Substance: LENALIDOMIDE
     Dosage: FOR 2 CYCLES
     Route: 048
     Dates: start: 20230310
  3. REVLIMID [Suspect]
     Active Substance: LENALIDOMIDE
     Dosage: FREQUENCY: 10MG TAKE ONE CAPSULE DAILY ON DAYS 1-21OF 28 DAY CYCLE
     Route: 048
     Dates: start: 20230420

REACTIONS (5)
  - White blood cell count decreased [Unknown]
  - Pneumonia [Unknown]
  - Blood potassium decreased [Unknown]
  - Cough [Unknown]
  - White blood cell count abnormal [Unknown]

NARRATIVE: CASE EVENT DATE: 20230301
